FAERS Safety Report 7992677-9 (Version None)
Quarter: 2011Q4

REPORT INFORMATION
  Report Type: 
  Country: None (occurrence: None)
  Receive Date: 20111219
  Receipt Date: 20110509
  Transmission Date: 20120403
  Serious: Yes (Other)
  Sender: FDA-Public Use
  Company Number: US-ASTRAZENECA-2011SE27395

PATIENT
  Age: 62 Year
  Sex: Male

DRUGS (5)
  1. CRESTOR [Suspect]
     Indication: LOW DENSITY LIPOPROTEIN INCREASED
     Route: 048
  2. ANTIDEPRESSANTS [Concomitant]
  3. ATIVAN [Concomitant]
  4. ZETIA [Concomitant]
  5. UNKNOWN HYPERTENSION MEDICATIONS [Concomitant]

REACTIONS (1)
  - RHABDOMYOLYSIS [None]
